FAERS Safety Report 15692309 (Version 2)
Quarter: 2018Q4

REPORT INFORMATION
  Report Type: Spontaneous
  Country: US (occurrence: US)
  Receive Date: 20181205
  Receipt Date: 20181231
  Transmission Date: 20190205
  Serious: No
  Sender: FDA-Public Use
  Company Number: US-CELGENEUS-USA-20181110590

PATIENT
  Age: 25 Year
  Sex: Male

DRUGS (2)
  1. OTEZLA [Suspect]
     Active Substance: APREMILAST
     Indication: PSORIASIS
     Dosage: 60 MILLIGRAM
     Route: 048
     Dates: start: 20180921
  2. OTEZLA [Suspect]
     Active Substance: APREMILAST
     Dosage: 60 MILLIGRAM
     Route: 048
     Dates: start: 20181120

REACTIONS (2)
  - Nausea [Not Recovered/Not Resolved]
  - Headache [Not Recovered/Not Resolved]

NARRATIVE: CASE EVENT DATE: 201811
